FAERS Safety Report 4379323-0 (Version None)
Quarter: 2004Q2

REPORT INFORMATION
  Report Type: 
  Country: None (occurrence: None)
  Receive Date: 20040614
  Receipt Date: 20040602
  Transmission Date: 20050107
  Serious: Yes (Hospitalization, Other)
  Sender: FDA-Public Use
  Company Number: S03-USA-05064-02

PATIENT
  Sex: Female
  Weight: 2.0412 kg

DRUGS (8)
  1. LEXAPRO [Suspect]
     Indication: DEPRESSION
     Dosage: 10 MG QD TRANSPLACENTAL
     Route: 064
     Dates: start: 20030721, end: 20031116
  2. LEXAPRO [Suspect]
     Indication: DEPRESSION
     Dosage: 10 MG QD PO
     Route: 064
  3. PRENATAL VITAMINS [Concomitant]
  4. EFFEXOR [Concomitant]
  5. WELLBUTRIN SR [Concomitant]
  6. WELLBUTRIN [Concomitant]
  7. NPH INSULIN [Concomitant]
  8. HUMALOG [Concomitant]

REACTIONS (6)
  - BREECH DELIVERY [None]
  - CAESAREAN SECTION [None]
  - DRUG EXPOSURE DURING PREGNANCY [None]
  - JAUNDICE NEONATAL [None]
  - NEONATAL ASPIRATION [None]
  - PREMATURE BABY [None]
